FAERS Safety Report 17016645 (Version 2)
Quarter: 2019Q4

REPORT INFORMATION
  Report Type: Spontaneous
  Country: IN (occurrence: IN)
  Receive Date: 20191111
  Receipt Date: 20191113
  Transmission Date: 20200122
  Serious: Yes (Other)
  Sender: FDA-Public Use
  Company Number: IN-PFIZER INC-2019479151

PATIENT
  Age: 46 Year
  Sex: Male

DRUGS (20)
  1. TRAMADOL. [Interacting]
     Active Substance: TRAMADOL
     Indication: GASTROINTESTINAL INFLAMMATION
     Dosage: 50 MG, UNK
  2. CEFTRIAXONE. [Concomitant]
     Active Substance: CEFTRIAXONE
     Indication: ANTIBIOTIC THERAPY
     Dosage: UNK
  3. CEFTRIAXONE. [Concomitant]
     Active Substance: CEFTRIAXONE
     Indication: IMMUNODEFICIENCY
  4. AMIKACIN. [Concomitant]
     Active Substance: AMIKACIN
     Indication: IMMUNODEFICIENCY
  5. METRONIDAZOLE. [Concomitant]
     Active Substance: METRONIDAZOLE
     Indication: ANTIBIOTIC THERAPY
     Dosage: UNK
  6. PIPERACILIN/TAZOBACTAM [Concomitant]
     Active Substance: PIPERACILLIN SODIUM\TAZOBACTAM SODIUM
     Indication: ANTIBIOTIC THERAPY
     Dosage: UNK
  7. TRAMADOL. [Interacting]
     Active Substance: TRAMADOL
     Indication: DIARRHOEA
  8. AMIKACIN. [Concomitant]
     Active Substance: AMIKACIN
     Indication: ANTIBIOTIC THERAPY
     Dosage: UNK
  9. METRONIDAZOLE. [Concomitant]
     Active Substance: METRONIDAZOLE
     Indication: IMMUNODEFICIENCY
  10. TEICOPLANIN [Concomitant]
     Active Substance: TEICOPLANIN
     Indication: IMMUNODEFICIENCY
  11. ONDANSETRON [Concomitant]
     Active Substance: ONDANSETRON
     Indication: GASTROINTESTINAL INFLAMMATION
     Dosage: 50 MG, 3X/DAY
  12. ONDANSETRON [Concomitant]
     Active Substance: ONDANSETRON
     Indication: DIARRHOEA
  13. FLUCONAZOLE. [Suspect]
     Active Substance: FLUCONAZOLE
     Indication: CANDIDA INFECTION
     Dosage: 200 MG, 1X/DAY, (INFUSION)
     Route: 042
  14. TRAMADOL. [Interacting]
     Active Substance: TRAMADOL
     Indication: STOMATITIS
  15. TEICOPLANIN [Concomitant]
     Active Substance: TEICOPLANIN
     Indication: ANTIBIOTIC THERAPY
     Dosage: UNK
  16. PIPERACILIN/TAZOBACTAM [Concomitant]
     Active Substance: PIPERACILLIN SODIUM\TAZOBACTAM SODIUM
     Indication: IMMUNODEFICIENCY
  17. FLUCONAZOLE. [Interacting]
     Active Substance: FLUCONAZOLE
     Indication: PROPHYLAXIS
  18. ONDANSETRON [Concomitant]
     Active Substance: ONDANSETRON
     Indication: STOMATITIS
  19. FLUCONAZOLE. [Interacting]
     Active Substance: FLUCONAZOLE
     Indication: IMMUNODEFICIENCY
  20. BORTEZOMIB. [Concomitant]
     Active Substance: BORTEZOMIB
     Indication: PLASMA CELL MYELOMA
     Dosage: UNK, CYCLIC (MAINTENANCE)

REACTIONS (3)
  - Hallucinations, mixed [Recovering/Resolving]
  - Hypnagogic hallucination [Recovering/Resolving]
  - Drug interaction [Recovering/Resolving]
